FAERS Safety Report 11425033 (Version 1)
Quarter: 2015Q3

REPORT INFORMATION
  Report Type: Spontaneous
  Country: US (occurrence: US)
  Receive Date: 20150821
  Receipt Date: 20150821
  Transmission Date: 20151125
  Serious: No
  Sender: FDA-Public Use
  Company Number: US-ELI_LILLY_AND_COMPANY-US201302002758

PATIENT
  Age: 59 Year
  Sex: Male

DRUGS (2)
  1. HUMULIN R [Suspect]
     Active Substance: INSULIN HUMAN
     Dosage: 13 IU, EACH EVENING
     Route: 065
  2. HUMULIN R [Suspect]
     Active Substance: INSULIN HUMAN
     Indication: TYPE 2 DIABETES MELLITUS
     Dosage: 13 IU, EACH MORNING
     Route: 065

REACTIONS (4)
  - Pain [Unknown]
  - Arthralgia [Unknown]
  - Influenza like illness [Unknown]
  - Cough [Unknown]

NARRATIVE: CASE EVENT DATE: 20130130
